FAERS Safety Report 6090600-8 (Version None)
Quarter: 2009Q1

REPORT INFORMATION
  Report Type: 
  Country: None (occurrence: None)
  Receive Date: 20090224
  Receipt Date: 20090113
  Transmission Date: 20090719
  Serious: No
  Sender: FDA-Public Use
  Company Number: US-ABBOTT-09P-163-0497145-00

PATIENT
  Sex: Female
  Weight: 46.308 kg

DRUGS (6)
  1. SIMCOR [Suspect]
     Indication: BLOOD CHOLESTEROL INCREASED
     Dosage: 500/20MG DAILY AT BEDTIME
     Dates: start: 20081219
  2. SYNTHROID [Concomitant]
     Indication: DRUG USE FOR UNKNOWN INDICATION
  3. PLAVIX [Concomitant]
     Indication: DRUG USE FOR UNKNOWN INDICATION
  4. HORMONES NOS [Concomitant]
     Indication: HOT FLUSH
  5. VALIUM [Concomitant]
     Indication: DRUG USE FOR UNKNOWN INDICATION
  6. STADOL [Concomitant]
     Indication: MIGRAINE
     Route: 050

REACTIONS (3)
  - FLUSHING [None]
  - NAUSEA [None]
  - VOMITING [None]
